FAERS Safety Report 8455019-0 (Version None)
Quarter: 2012Q2

REPORT INFORMATION
  Report Type: 
  Country: None (occurrence: None)
  Receive Date: 20120615
  Receipt Date: 20120615
  Transmission Date: 20120825
  Serious: Yes (Disabling, Other)
  Sender: FDA-Public Use
  Company Number: None

PATIENT
  Age: 32 Year
  Sex: Male
  Weight: 74.8435 kg

DRUGS (1)
  1. CIPROFLOXACIN HCL [Suspect]
     Dosage: 500 MG - 14 DAYS 2X DAILY ORAL
     Route: 048

REACTIONS (11)
  - HEADACHE [None]
  - TINNITUS [None]
  - MUSCULAR WEAKNESS [None]
  - PANIC ATTACK [None]
  - DEPRESSION [None]
  - ANXIETY [None]
  - WEIGHT DECREASED [None]
  - INSOMNIA [None]
  - NAUSEA [None]
  - FATIGUE [None]
  - PAIN IN JAW [None]
